FAERS Safety Report 8114010-4 (Version None)
Quarter: 2012Q1

REPORT INFORMATION
  Report Type: 
  Country: None (occurrence: None)
  Receive Date: 20120203
  Receipt Date: 20120125
  Transmission Date: 20120608
  Serious: Yes (Other)
  Sender: FDA-Public Use
  Company Number: US-ASTRAZENECA-2012SE05472

PATIENT
  Age: 45 Year
  Sex: Female
  Weight: 85.7 kg

DRUGS (7)
  1. TOPROL-XL [Suspect]
     Indication: BLOOD PRESSURE ABNORMAL
     Route: 048
     Dates: start: 20100205
  2. RESTORIL [Concomitant]
     Dosage: 1-2 AT BEDTIME
     Route: 048
  3. FLEXERIL [Concomitant]
     Dosage: TAKE ONE MORNING, MID DAY AND EVENING FOR A TOTAL OF THREE TIMES DAILY
     Route: 048
  4. ZIPSOR [Concomitant]
     Indication: PAIN
     Dosage: TAKE ONE EACH MORNING AND EVENING FOR A TOTAL OF TWO DAILY AS NEEDED
     Route: 048
  5. NAPROXEN [Concomitant]
     Dosage: TAKE ONE EACH MORNING AND EVENING FOR A TOTAL OF TWO DAILY TAKE WITH FOOD
     Route: 048
  6. SEROQUEL XR [Suspect]
     Indication: BIPOLAR DISORDER
     Route: 048
     Dates: start: 20100205
  7. PENLAC [Concomitant]
     Dosage: 8 % APPLY THIN LAYER EVENLY ONCE DAILY OVER PREVIOUS COATS TO ENTIRE NAIL

REACTIONS (31)
  - BRONCHITIS [None]
  - SEASONAL ALLERGY [None]
  - EXTRASYSTOLES [None]
  - MUSCULOSKELETAL CHEST PAIN [None]
  - CYSTITIS [None]
  - FURUNCLE [None]
  - SINUSITIS [None]
  - INSOMNIA [None]
  - DEPRESSION [None]
  - PALPITATIONS [None]
  - SUICIDAL IDEATION [None]
  - URINARY TRACT INFECTION [None]
  - PRURITUS [None]
  - SUBCUTANEOUS ABSCESS [None]
  - STRESS [None]
  - RASH [None]
  - NASAL CONGESTION [None]
  - ONYCHOMYCOSIS [None]
  - BREAST PAIN [None]
  - RHINITIS ALLERGIC [None]
  - ARTHRALGIA [None]
  - FATIGUE [None]
  - FALL [None]
  - JOINT INJURY [None]
  - SINUS DISORDER [None]
  - MUSCULOSKELETAL PAIN [None]
  - DYSPNOEA [None]
  - ARTHROPOD BITE [None]
  - UPPER RESPIRATORY TRACT INFECTION [None]
  - ANXIETY [None]
  - WEIGHT INCREASED [None]
